FAERS Safety Report 19996349 (Version 1)
Quarter: 2021Q4

REPORT INFORMATION
  Report Type: Other
  Country: US (occurrence: US)
  Receive Date: 20211026
  Receipt Date: 20211026
  Transmission Date: 20220303
  Serious: Yes (Hospitalization)
  Sender: FDA-Public Use
  Company Number: US-ORBION PHARMACEUTICALS PRIVATE LIMITED-2120995

PATIENT
  Age: 18 Year
  Sex: Male

DRUGS (3)
  1. DIVALPROEX SODIUM [Suspect]
     Active Substance: DIVALPROEX SODIUM
     Route: 065
  2. QUETIAPINE [Concomitant]
     Active Substance: QUETIAPINE
     Route: 065
  3. CLONAZEPAM [Concomitant]
     Active Substance: CLONAZEPAM
     Route: 065

REACTIONS (9)
  - Suicide attempt [Recovered/Resolved]
  - Overdose [Recovered/Resolved]
  - Hypokalaemia [Recovered/Resolved]
  - Hyperchloraemia [Recovered/Resolved]
  - Mental status changes [Not Recovered/Not Resolved]
  - Hyperammonaemia [Recovered/Resolved]
  - Brain oedema [Recovered/Resolved]
  - Drug level above therapeutic [Recovered/Resolved]
  - Coma [Recovered/Resolved]
